FAERS Safety Report 9679508 (Version 1)
Quarter: 2013Q4

REPORT INFORMATION
  Report Type: Spontaneous
  Country: US (occurrence: US)
  Receive Date: 20131109
  Receipt Date: 20131109
  Transmission Date: 20140711
  Serious: No
  Sender: FDA-Public Use
  Company Number: US-SANOFI-AVENTIS-2013SA065186

PATIENT
  Age: 63 Year
  Sex: Female

DRUGS (4)
  1. ALLEGRA-D [Suspect]
     Indication: DYSPNOEA
     Dosage: DOSE:60 UNIT(S)
     Route: 048
     Dates: start: 20130617
  2. ALLEGRA-D [Suspect]
     Indication: SINUS DISORDER
     Dosage: DOSE:60 UNIT(S)
     Route: 048
     Dates: start: 20130617
  3. AUGMENTIN [Concomitant]
     Indication: DYSPNOEA
  4. AUGMENTIN [Concomitant]
     Indication: SINUS DISORDER

REACTIONS (3)
  - Gastric disorder [Unknown]
  - Malaise [Unknown]
  - Nausea [Unknown]
